FAERS Safety Report 6486411-1 (Version None)
Quarter: 2009Q4

REPORT INFORMATION
  Report Type: 
  Country: None (occurrence: None)
  Receive Date: 20091210
  Receipt Date: 20091202
  Transmission Date: 20100525
  Serious: Yes (Hospitalization)
  Sender: FDA-Public Use
  Company Number: US-BIOGENIDEC-2009BI027373

PATIENT
  Age: 54 Year
  Sex: Female

DRUGS (17)
  1. AVONEX [Suspect]
     Indication: MULTIPLE SCLEROSIS
     Route: 030
     Dates: start: 20070321
  2. FLUOXETINE [Concomitant]
     Route: 048
  3. LEVOTHYROXINE SODIUM [Concomitant]
     Route: 048
  4. ACETAMINOPHEN [Concomitant]
     Indication: PAIN
     Route: 048
  5. MAGNESIUM HYDROXIDE TAB [Concomitant]
     Route: 048
  6. ASPIRIN [Concomitant]
     Route: 048
  7. FAMOTIDINE [Concomitant]
     Route: 048
  8. MODAFINIL [Concomitant]
     Route: 048
  9. VITAMIN D [Concomitant]
     Dosage: DOSE UNIT:1000
     Route: 048
  10. AMITRIPTYLINE [Concomitant]
     Route: 048
  11. CYCLOBENZAPRINE [Concomitant]
     Indication: MUSCLE SPASMS
     Route: 048
  12. CYCLOBENZAPRINE [Concomitant]
     Route: 048
  13. PROPOXYPHENE NAPSYLATE AND ACETAMINOPHEN [Concomitant]
     Indication: PAIN
     Route: 048
  14. MULTI-VITAMIN [Concomitant]
     Route: 048
  15. DARVOCET-N 100 [Concomitant]
     Route: 048
  16. IBUPROFEN [Concomitant]
     Route: 048
  17. NASONEX [Concomitant]
     Route: 045

REACTIONS (6)
  - CEREBROVASCULAR ACCIDENT [None]
  - DEPRESSION [None]
  - MOOD SWINGS [None]
  - PAIN [None]
  - PAIN IN EXTREMITY [None]
  - POOR QUALITY SLEEP [None]
